FAERS Safety Report 11096024 (Version 3)
Quarter: 2015Q2

REPORT INFORMATION
  Report Type: Spontaneous
  Country: IT (occurrence: None)
  Receive Date: 20150505
  Receipt Date: 20150611
  Transmission Date: 20150821
  Serious: Yes (Hospitalization)
  Sender: FDA-Public Use
  Company Number: DEP_02727_2015

PATIENT
  Age: 24 Year
  Sex: Female
  Weight: 62 kg

DRUGS (1)
  1. TAPENTADOL [Suspect]
     Active Substance: TAPENTADOL
     Indication: BACK PAIN
     Route: 048

REACTIONS (8)
  - Tremor [None]
  - Vertigo [None]
  - Electrocardiogram ST segment elevation [None]
  - Serotonin syndrome [None]
  - Palpitations [None]
  - Chest discomfort [None]
  - Erythema [None]
  - Tachycardia [None]
